FAERS Safety Report 14983765 (Version 2)
Quarter: 2018Q2

REPORT INFORMATION
  Report Type: Spontaneous
  Country: FR (occurrence: FR)
  Receive Date: 20180607
  Receipt Date: 20180626
  Transmission Date: 20180711
  Serious: Yes (Death)
  Sender: FDA-Public Use
  Company Number: FR-PFIZER INC-2018232738

PATIENT
  Age: 78 Year
  Sex: Female
  Weight: 37.6 kg

DRUGS (8)
  1. PRIMPERAN [Suspect]
     Active Substance: METOCLOPRAMIDE HYDROCHLORIDE
     Dosage: DOSAGE FORM: UNSPECIFIED
     Route: 042
     Dates: start: 20180307
  2. TRIFLUCAN [Suspect]
     Active Substance: FLUCONAZOLE
     Dosage: 100 MG, 1X/DAY
     Route: 065
     Dates: start: 20180301, end: 20180314
  3. ANAFRANIL [Suspect]
     Active Substance: CLOMIPRAMINE HYDROCHLORIDE
     Dosage: DOSAGE FORM: UNSPECIFIED
     Route: 042
     Dates: start: 20180313, end: 20180313
  4. ZOPHREN [Suspect]
     Active Substance: ONDANSETRON
     Dosage: DOSAGE FORM: UNSPECIFIED
     Route: 042
     Dates: start: 20180306, end: 20180307
  5. PERINUTRIFLEX [Suspect]
     Active Substance: AMINO ACIDS\DEXTROSE\ELECTROLYTES NOS
     Dosage: UNK
     Dates: start: 201802
  6. FRAGMINE [Suspect]
     Active Substance: DALTEPARIN SODIUM
     Dosage: DOSAGE FORM: UNSPECIFIED
     Route: 065
     Dates: start: 20180306
  7. PARACETAMOL [Suspect]
     Active Substance: ACETAMINOPHEN
     Dosage: DOSAGE FORM: UNSPECIFIED
     Route: 042
     Dates: start: 20180306
  8. LORMETAZEPAM [Suspect]
     Active Substance: LORMETAZEPAM
     Dosage: DOSAGE FORM: UNSPECIFIED
     Route: 048
     Dates: start: 20180306

REACTIONS (1)
  - Pancytopenia [Fatal]

NARRATIVE: CASE EVENT DATE: 20180314
